FAERS Safety Report 4689244-1 (Version None)
Quarter: 2005Q2

REPORT INFORMATION
  Report Type: 
  Country: None (occurrence: None)
  Receive Date: 20050613
  Receipt Date: 20030605
  Transmission Date: 20051028
  Serious: Yes (Hospitalization, Disabling, Other)
  Sender: FDA-Public Use
  Company Number: US-MERCK-0306USA00759

PATIENT
  Age: 54 Year
  Sex: Male
  Weight: 120 kg

DRUGS (28)
  1. VIOXX [Suspect]
     Indication: BACK PAIN
     Route: 048
     Dates: start: 20000401, end: 20010201
  2. VIOXX [Suspect]
     Route: 048
     Dates: start: 20010904
  3. VIOXX [Suspect]
     Route: 048
     Dates: start: 20010226, end: 20010901
  4. VIOXX [Suspect]
     Route: 048
     Dates: start: 20000104
  5. VIOXX [Suspect]
     Indication: PAIN IN EXTREMITY
     Route: 048
     Dates: start: 20000401, end: 20010201
  6. VIOXX [Suspect]
     Route: 048
     Dates: start: 20010904
  7. VIOXX [Suspect]
     Route: 048
     Dates: start: 20010226, end: 20010901
  8. VIOXX [Suspect]
     Route: 048
     Dates: start: 20000104
  9. BUSPAR [Concomitant]
     Route: 048
     Dates: start: 19990402, end: 20000510
  10. LORTAB [Concomitant]
     Route: 048
     Dates: start: 19990410, end: 20001102
  11. LORTAB [Concomitant]
     Route: 048
  12. ZIAC [Concomitant]
     Indication: HYPERTENSION
     Route: 048
     Dates: start: 20000410, end: 20010225
  13. VICODIN [Concomitant]
     Indication: PAIN IN EXTREMITY
     Route: 048
     Dates: start: 20010225
  14. LIPITOR [Concomitant]
     Route: 048
     Dates: start: 20010707
  15. VALIUM [Concomitant]
     Route: 048
     Dates: start: 20010226, end: 20010927
  16. TALWIN [Concomitant]
     Route: 048
     Dates: start: 20010904, end: 20010927
  17. ULTRAM [Concomitant]
     Route: 048
     Dates: start: 20010904, end: 20010912
  18. SKELAXIN [Concomitant]
     Route: 048
     Dates: start: 20010927, end: 20011010
  19. TENYL [Concomitant]
     Route: 065
     Dates: start: 20010906, end: 20011011
  20. CLARITIN [Concomitant]
     Route: 065
  21. SERZONE [Concomitant]
     Route: 065
  22. CARISOPRODOL [Concomitant]
     Route: 065
  23. ACETAMINOPHEN AND PROPOXYPHENE HYDROCHLORIDE [Concomitant]
     Route: 065
  24. MOBIC [Concomitant]
     Route: 065
  25. HYDROCODONE HYDROCHLORIDE [Concomitant]
     Route: 065
  26. ALTACE [Concomitant]
     Route: 065
  27. TOPROL-XL [Concomitant]
     Route: 065
  28. ASPIRIN [Concomitant]
     Route: 065

REACTIONS (69)
  - ACCIDENT AT WORK [None]
  - ACQUIRED DIAPHRAGMATIC EVENTRATION [None]
  - ACUTE RESPIRATORY FAILURE [None]
  - ALCOHOL USE [None]
  - ANGINA PECTORIS [None]
  - ARRHYTHMIA [None]
  - ATELECTASIS [None]
  - ATRIAL FIBRILLATION [None]
  - BACK PAIN [None]
  - BASAL CELL CARCINOMA [None]
  - BIPOLAR DISORDER [None]
  - BLOOD PRESSURE INCREASED [None]
  - BUNDLE BRANCH BLOCK RIGHT [None]
  - CARDIAC ARREST [None]
  - CARDIAC FAILURE CONGESTIVE [None]
  - CARDIOMEGALY [None]
  - CEREBRAL ISCHAEMIA [None]
  - CHEST DISCOMFORT [None]
  - CHEST PAIN [None]
  - CONVULSION [None]
  - CORONARY ARTERY ATHEROSCLEROSIS [None]
  - CORONARY ARTERY DISEASE [None]
  - CORONARY ARTERY OCCLUSION [None]
  - DECREASED ACTIVITY [None]
  - DIAPHRAGMATIC DISORDER [None]
  - DIAPHRAGMATIC PARALYSIS [None]
  - DIASTOLIC HYPERTENSION [None]
  - DISEASE RECURRENCE [None]
  - DRUG ABUSER [None]
  - DYSKINESIA [None]
  - DYSPNOEA [None]
  - DYSPNOEA EXERTIONAL [None]
  - EJECTION FRACTION DECREASED [None]
  - ELECTROCARDIOGRAM CHANGE [None]
  - ELECTROCARDIOGRAM P WAVE ABNORMAL [None]
  - ELECTROCARDIOGRAM QRS COMPLEX PROLONGED [None]
  - FATIGUE [None]
  - FEELING ABNORMAL [None]
  - HAEMOPTYSIS [None]
  - HYPERCHOLESTEROLAEMIA [None]
  - HYPOTENSION [None]
  - HYPOXIC ENCEPHALOPATHY [None]
  - IMPLANT SITE ERYTHEMA [None]
  - IMPLANT SITE SWELLING [None]
  - INTERVERTEBRAL DISC DEGENERATION [None]
  - INTERVERTEBRAL DISC PROTRUSION [None]
  - JAW DISORDER [None]
  - LOSS OF CONSCIOUSNESS [None]
  - LUMBAR SPINAL STENOSIS [None]
  - LUNG CONSOLIDATION [None]
  - MUSCULOSKELETAL DISCOMFORT [None]
  - MYOCARDIAL INFARCTION [None]
  - MYOCARDIAL ISCHAEMIA [None]
  - NODAL RHYTHM [None]
  - PULMONARY CONGESTION [None]
  - RADICULAR PAIN [None]
  - RESPIRATORY RATE INCREASED [None]
  - ROAD TRAFFIC ACCIDENT [None]
  - SINUS DISORDER [None]
  - SQUAMOUS CELL CARCINOMA OF SKIN [None]
  - STRESS [None]
  - SUDDEN DEATH [None]
  - TREMOR [None]
  - VENTRICULAR EXTRASYSTOLES [None]
  - VENTRICULAR FIBRILLATION [None]
  - VENTRICULAR HYPERTROPHY [None]
  - VENTRICULAR HYPOKINESIA [None]
  - WEIGHT DECREASED [None]
  - WEIGHT INCREASED [None]
